FAERS Safety Report 24184463 (Version 2)
Quarter: 2024Q3

REPORT INFORMATION
  Report Type: Spontaneous
  Country: US (occurrence: US)
  Receive Date: 20240807
  Receipt Date: 20240813
  Transmission Date: 20241017
  Serious: No
  Sender: PFIZER
  Company Number: US-PFIZER INC-202400228611

PATIENT
  Age: 57 Year
  Sex: Male
  Weight: 68.1 kg

DRUGS (7)
  1. HEPARIN SODIUM [Suspect]
     Active Substance: HEPARIN SODIUM
     Indication: Acute myocardial infarction
     Dosage: 40 UNITS/KG BOLUS,  CONTINUOUS INFUSION AT 14 UNITS/KG/HR; 1X/DAY
     Route: 042
     Dates: start: 20240612, end: 20240612
  2. HEPARIN [Suspect]
     Active Substance: HEPARIN SODIUM
     Indication: Thrombosis prophylaxis
     Dosage: UNK
     Route: 041
  3. ASPIRIN [Concomitant]
     Active Substance: ASPIRIN
     Dosage: 81 MG PO (PER ORAL) QD (ONCE A DAY); EMPAGLIFLOZIN 10 MG PO (PER ORAL) QD (ONCE A DAY); FUROSEMIDE 4
     Route: 048
  4. EMPAGLIFLOZIN [Concomitant]
     Active Substance: EMPAGLIFLOZIN
     Dosage: 10 MG PO (PER ORAL) QD (ONCE A DAY)
     Route: 048
  5. FUROSEMIDE [Concomitant]
     Active Substance: FUROSEMIDE
     Dosage: 40 MG IV (INTRAVENOUS) BID (TWO TIMES A DAY)
     Route: 042
  6. LISINOPRIL [Concomitant]
     Active Substance: LISINOPRIL
     Dosage: 5 MG PO (PER ORAL) QD (ONCE A DAY)
     Route: 048
  7. METOPROLOL SUCCINATE [Concomitant]
     Active Substance: METOPROLOL SUCCINATE
     Dosage: 12.5 MG PO (PER ORAL) QD (ONCE A DAY)
     Route: 048

REACTIONS (2)
  - Off label use [Unknown]
  - Drug ineffective for unapproved indication [Unknown]

NARRATIVE: CASE EVENT DATE: 20240612
